FAERS Safety Report 4612504-7 (Version None)
Quarter: 2005Q1

REPORT INFORMATION
  Report Type: 
  Country: None (occurrence: None)
  Receive Date: 20050318
  Receipt Date: 20050304
  Transmission Date: 20050727
  Serious: Yes (Hospitalization, Other)
  Sender: FDA-Public Use
  Company Number: 200510718JP

PATIENT
  Age: 64 Year
  Sex: Female
  Weight: 60 kg

DRUGS (9)
  1. ARAVA [Suspect]
     Indication: RHEUMATOID ARTHRITIS
     Route: 048
     Dates: start: 20031203, end: 20040427
  2. PREDNISOLONE [Concomitant]
     Indication: RHEUMATOID ARTHRITIS
     Dosage: DOSE: 2TABLETS
     Route: 048
  3. RIMATIL [Concomitant]
     Indication: RHEUMATOID ARTHRITIS
     Dosage: DOSE: 1TABLET
     Route: 048
     Dates: end: 20031201
  4. FOSAMAC TABLETS [Concomitant]
     Indication: OSTEOPOROSIS
     Dosage: DOSE: 1TABLET
     Route: 048
  5. MUCOSTA [Concomitant]
     Indication: GASTRITIS
  6. MUCOSTA [Concomitant]
     Indication: REFLUX OESOPHAGITIS
  7. CALFINA [Concomitant]
     Indication: OSTEOPOROSIS
     Dosage: DOSE: 1TABLET
     Route: 048
  8. HERBESSER [Concomitant]
     Indication: HYPERTENSION
     Route: 048
     Dates: start: 20040224
  9. NORVASC [Concomitant]
     Indication: HYPERTENSION
     Dosage: DOSE: 1TABLET
     Route: 048
     Dates: start: 20040316

REACTIONS (5)
  - BLOOD ALKALINE PHOSPHATASE INCREASED [None]
  - CONDITION AGGRAVATED [None]
  - HYPERTENSION [None]
  - RETINAL HAEMORRHAGE [None]
  - WHITE BLOOD CELL COUNT DECREASED [None]
